FAERS Safety Report 22133170 (Version 1)
Quarter: 2023Q1

REPORT INFORMATION
  Report Type: Report from Study
  Country: IN (occurrence: IN)
  Receive Date: 20230324
  Receipt Date: 20230324
  Transmission Date: 20230418
  Serious: Yes (Other)
  Sender: FDA-Public Use
  Company Number: IN-002147023-NVSC2022IN041606

PATIENT
  Age: 32 Year
  Sex: Male
  Weight: 76 kg

DRUGS (4)
  1. TASIGNA [Suspect]
     Active Substance: NILOTINIB
     Indication: Chronic myeloid leukaemia
     Dosage: 400 MG, BID
     Route: 048
     Dates: start: 20210818, end: 20230309
  2. TASIGNA [Suspect]
     Active Substance: NILOTINIB
     Dosage: 400 MG, BID
     Route: 048
     Dates: start: 20230310
  3. SINAREST [Concomitant]
     Indication: Product used for unknown indication
     Dosage: UNK
     Route: 065
  4. AZITHROMYCIN [Concomitant]
     Active Substance: AZITHROMYCIN
     Indication: Product used for unknown indication
     Dosage: UNK (STRENGTH: 500)
     Route: 065

REACTIONS (7)
  - Abdominal pain upper [Unknown]
  - Upper respiratory tract congestion [Unknown]
  - Asthenia [Unknown]
  - Platelet count decreased [Unknown]
  - Dyschezia [Unknown]
  - Furuncle [Unknown]
  - Blister [Unknown]

NARRATIVE: CASE EVENT DATE: 20220119
